FAERS Safety Report 25307662 (Version 2)
Quarter: 2025Q2

REPORT INFORMATION
  Report Type: Spontaneous
  Country: GB (occurrence: GB)
  Receive Date: 20250513
  Receipt Date: 20250519
  Transmission Date: 20250716
  Serious: Yes (Life-Threatening, Hospitalization, Other)
  Sender: PFIZER
  Company Number: GB-PFIZER INC-PV202500056692

PATIENT
  Age: 47 Year
  Sex: Male

DRUGS (13)
  1. LORLATINIB [Suspect]
     Active Substance: LORLATINIB
     Indication: Non-small cell lung cancer metastatic
     Dosage: 100 MG, DAILY
     Dates: start: 202208
  2. LORLATINIB [Suspect]
     Active Substance: LORLATINIB
     Dosage: 50 MG, DAILY
  3. DOXAZOSIN [Concomitant]
     Active Substance: DOXAZOSIN MESYLATE
     Indication: Hypercholesterolaemia
  4. RAMIPRIL [Concomitant]
     Active Substance: RAMIPRIL
     Indication: Hypercholesterolaemia
  5. EDOXABAN [Concomitant]
     Active Substance: EDOXABAN
     Indication: Hypercholesterolaemia
  6. METFORMIN [Concomitant]
     Active Substance: METFORMIN HYDROCHLORIDE
     Indication: Hypercholesterolaemia
  7. INSULIN NOS [Concomitant]
     Active Substance: INSULIN NOS
     Indication: Hypercholesterolaemia
  8. AMLODIPINE [Concomitant]
     Active Substance: AMLODIPINE BESYLATE
     Indication: Hypercholesterolaemia
  9. ROSUVASTATIN [Concomitant]
     Active Substance: ROSUVASTATIN
     Indication: Hypercholesterolaemia
  10. ALLOPURINOL [Concomitant]
     Active Substance: ALLOPURINOL
     Indication: Hypercholesterolaemia
  11. RISPERIDONE [Concomitant]
     Active Substance: RISPERIDONE
     Dosage: 4 MG, DAILY
  12. RISPERIDONE [Concomitant]
     Active Substance: RISPERIDONE
     Dosage: 2 MG, DAILY
  13. PROCYCLIDINE [Concomitant]
     Active Substance: PROCYCLIDINE

REACTIONS (3)
  - Substance-induced psychotic disorder [Recovered/Resolved]
  - Hallucination, visual [Recovered/Resolved]
  - Hallucination, olfactory [Recovered/Resolved]

NARRATIVE: CASE EVENT DATE: 20220101
